FAERS Safety Report 21962492 (Version 2)
Quarter: 2023Q1

REPORT INFORMATION
  Report Type: Spontaneous
  Country: CN (occurrence: CN)
  Receive Date: 20230207
  Receipt Date: 20230208
  Transmission Date: 20230418
  Serious: Yes (Hospitalization, Other)
  Sender: FDA-Public Use
  Company Number: CN-009507513-2302CHN001481

PATIENT
  Sex: Male
  Weight: 112 kg

DRUGS (6)
  1. CILASTATIN SODIUM\IMIPENEM [Suspect]
     Active Substance: CILASTATIN SODIUM\IMIPENEM
     Indication: Pneumonia
     Dosage: 1 G, Q6H
     Route: 041
     Dates: start: 20230125, end: 20230130
  2. SODIUM CHLORIDE [Concomitant]
     Active Substance: SODIUM CHLORIDE
     Indication: Medication dilution
     Dosage: 100 ML, Q6H
     Route: 041
     Dates: start: 20230120, end: 20230130
  3. AMBROXOL HYDROCHLORIDE AND GLUCOSE [Concomitant]
     Indication: Pneumonia
     Dosage: 30 MG, Q8H
     Route: 041
     Dates: start: 20230120, end: 20230130
  4. OMEPRAZOLE SODIUM [Concomitant]
     Active Substance: OMEPRAZOLE SODIUM
     Dosage: 60 MG, QD
     Route: 041
     Dates: start: 20230126, end: 20230130
  5. OXCARBAZEPINE [Concomitant]
     Active Substance: OXCARBAZEPINE
     Indication: Epilepsy
     Dosage: 0.3G, QD
     Route: 048
     Dates: start: 20221209, end: 20230130
  6. VALPROATE SODIUM [Concomitant]
     Active Substance: VALPROATE SODIUM
     Indication: Epilepsy
     Dosage: 0.5G, BID
     Route: 048
     Dates: start: 20221209, end: 20230130

REACTIONS (1)
  - Epilepsy [Not Recovered/Not Resolved]

NARRATIVE: CASE EVENT DATE: 20230129
